FAERS Safety Report 22226652 (Version 2)
Quarter: 2023Q2

REPORT INFORMATION
  Report Type: Other
  Country: US (occurrence: None)
  Receive Date: 20230419
  Receipt Date: 20230602
  Transmission Date: 20230721
  Serious: Yes (Disabling)
  Sender: FDA-Public Use
  Company Number: US-ROCHE-3330856

PATIENT
  Age: 65 Year
  Sex: Male

DRUGS (11)
  1. OCRELIZUMAB [Suspect]
     Active Substance: OCRELIZUMAB
     Indication: Multiple sclerosis
     Route: 042
     Dates: start: 20200331, end: 20200414
  2. OCRELIZUMAB [Suspect]
     Active Substance: OCRELIZUMAB
     Route: 042
     Dates: start: 20201015
  3. AMPYRA [Concomitant]
     Active Substance: DALFAMPRIDINE
     Dates: start: 201003
  4. BACLOFEN [Concomitant]
     Active Substance: BACLOFEN
     Dates: start: 2006
  5. VIAGRA [Concomitant]
     Active Substance: SILDENAFIL CITRATE
     Indication: Erectile dysfunction
  6. CRANBERRY [Concomitant]
     Active Substance: CRANBERRY
     Dates: start: 2019
  7. ATORVASTATIN [Concomitant]
     Active Substance: ATORVASTATIN
  8. TAMSULOSIN [Concomitant]
     Active Substance: TAMSULOSIN
     Dates: start: 2019
  9. FINASTERIDE [Concomitant]
     Active Substance: FINASTERIDE
     Indication: Prostatomegaly
     Dates: start: 202102
  10. PFIZER-BIONTECH COVID-19 VACCINE [Concomitant]
     Active Substance: TOZINAMERAN
     Dates: start: 20210731, end: 20210731
  11. PFIZER-BIONTECH COVID-19 VACCINE [Concomitant]
     Active Substance: TOZINAMERAN
     Dates: start: 20210821, end: 20210821

REACTIONS (1)
  - COVID-19 [Recovered/Resolved]

NARRATIVE: CASE EVENT DATE: 20221201
